FAERS Safety Report 9311976 (Version 1)
Quarter: 2013Q2

REPORT INFORMATION
  Report Type: Spontaneous
  Country: US (occurrence: US)
  Receive Date: 20130528
  Receipt Date: 20130528
  Transmission Date: 20140414
  Serious: Yes (Other)
  Sender: FDA-Public Use
  Company Number: US-SANOFI-AVENTIS-2013SA052127

PATIENT
  Age: 76 Year
  Sex: Female
  Weight: 84 kg

DRUGS (1)
  1. PLAVIX [Suspect]
     Indication: CARDIAC DISORDER
     Route: 048

REACTIONS (3)
  - Atrial fibrillation [Unknown]
  - Aortic valve replacement [Unknown]
  - Implantable defibrillator insertion [Unknown]
